FAERS Safety Report 8230701-9 (Version None)
Quarter: 2012Q1

REPORT INFORMATION
  Report Type: 
  Country: None (occurrence: None)
  Receive Date: 20120321
  Receipt Date: 20120312
  Transmission Date: 20120608
  Serious: Yes (Death, Other)
  Sender: FDA-Public Use
  Company Number: JPI-P-019981

PATIENT
  Age: 47 Year
  Sex: Male

DRUGS (5)
  1. MIDAZOLAM [Suspect]
     Indication: ELECTROCONVULSIVE THERAPY
  2. BUPRENORPHINE HCL [Suspect]
     Indication: ELECTROCONVULSIVE THERAPY
  3. PROPOFOL [Concomitant]
     Indication: ELECTROCONVULSIVE THERAPY
     Dosage: INTRAVENOUS
     Route: 042
  4. XYREM [Suspect]
     Indication: SLEEP DISORDER
     Dosage: 6 GM (3 GM,2 IN 1 D),ORAL
     Route: 048
     Dates: start: 20090611
  5. PROMETHAZINE HCL [Suspect]
     Indication: ELECTROCONVULSIVE THERAPY

REACTIONS (1)
  - CARDIO-RESPIRATORY ARREST [None]
